FAERS Safety Report 16304526 (Version 1)
Quarter: 2019Q2

REPORT INFORMATION
  Report Type: Spontaneous
  Country: US (occurrence: US)
  Receive Date: 20190513
  Receipt Date: 20190513
  Transmission Date: 20190711
  Serious: No
  Sender: FDA-Public Use
  Company Number: US-PFIZER INC-2019201087

PATIENT
  Sex: Male

DRUGS (2)
  1. ZALEPLON. [Suspect]
     Active Substance: ZALEPLON
     Indication: INSOMNIA
  2. ZALEPLON. [Suspect]
     Active Substance: ZALEPLON
     Indication: SLEEP DISORDER
     Dosage: UNK, AS NEEDED (ON AND OFF AS NEEDED FOR SEVERAL YEARS)

REACTIONS (2)
  - Terminal insomnia [Unknown]
  - Drug ineffective [Unknown]
